FAERS Safety Report 15014306 (Version 2)
Quarter: 2018Q3

REPORT INFORMATION
  Report Type: Spontaneous
  Country: JP (occurrence: JP)
  Receive Date: 20180615
  Receipt Date: 20180911
  Transmission Date: 20181010
  Serious: Yes (Death, Life-Threatening, Other)
  Sender: FDA-Public Use
  Company Number: JP-MACLEODS PHARMACEUTICALS US LTD-MAC2018014244

PATIENT

DRUGS (2)
  1. QUETIAPINE. [Suspect]
     Active Substance: QUETIAPINE
     Indication: PRODUCT USED FOR UNKNOWN INDICATION
     Dosage: UNK, OVERDOSE
     Route: 048
  2. FLUNITRAZEPAM [Suspect]
     Active Substance: FLUNITRAZEPAM
     Indication: PRODUCT USED FOR UNKNOWN INDICATION
     Dosage: UNK, OVERDOSE
     Route: 048

REACTIONS (5)
  - Brain oedema [Not Recovered/Not Resolved]
  - Intentional overdose [Fatal]
  - Toxicity to various agents [Fatal]
  - Hypothermia [Fatal]
  - Loss of consciousness [Not Recovered/Not Resolved]
